FAERS Safety Report 4606912-8 (Version None)
Quarter: 2005Q1

REPORT INFORMATION
  Report Type: 
  Country: None (occurrence: None)
  Receive Date: 20050309
  Receipt Date: 20050215
  Transmission Date: 20050727
  Serious: Yes (Hospitalization, Other)
  Sender: FDA-Public Use
  Company Number: US_0501109957

PATIENT
  Age: 36 Year
  Sex: Female
  Weight: 61 kg

DRUGS (6)
  1. ZYPREXA [Suspect]
     Dates: start: 19990101, end: 20030101
  2. PAXIL [Concomitant]
  3. NEURONTIN [Concomitant]
  4. METHADONE [Concomitant]
  5. VITAMINS NOS [Concomitant]
  6. PROTONIX [Concomitant]

REACTIONS (10)
  - ANXIETY [None]
  - DEPRESSION [None]
  - HAND FRACTURE [None]
  - LIVER DISORDER [None]
  - NEUROPATHY [None]
  - PANCREATITIS [None]
  - PANIC ATTACK [None]
  - PERSONALITY DISORDER [None]
  - POLYSUBSTANCE DEPENDENCE [None]
  - ROAD TRAFFIC ACCIDENT [None]
